FAERS Safety Report 7595748-4 (Version None)
Quarter: 2011Q3

REPORT INFORMATION
  Report Type: 
  Country: None (occurrence: None)
  Receive Date: 20110707
  Receipt Date: 20110629
  Transmission Date: 20111222
  Serious: Yes (Hospitalization)
  Sender: FDA-Public Use
  Company Number: FR-PFIZER INC-2011104084

PATIENT
  Age: 34 Year
  Sex: Male

DRUGS (2)
  1. CELLCEPT [Suspect]
     Dosage: 1 G, 1X/DAY
     Route: 048
  2. SIROLIMUS [Suspect]
     Indication: IMMUNOSUPPRESSANT DRUG THERAPY
     Dosage: 3 MG, 1X/DAY
     Route: 048

REACTIONS (10)
  - RESPIRATORY DISTRESS [None]
  - ASCITES [None]
  - TRANSPLANT REJECTION [None]
  - SHOCK HAEMORRHAGIC [None]
  - PERITONITIS PNEUMOCOCCAL [None]
  - KLEBSIELLA INFECTION [None]
  - SMALL INTESTINAL OBSTRUCTION [None]
  - PNEUMOPERITONEUM [None]
  - PERITONEAL HAEMORRHAGE [None]
  - DUODENAL FISTULA [None]
